FAERS Safety Report 4661900-0 (Version None)
Quarter: 2005Q2

REPORT INFORMATION
  Report Type: 
  Country: None (occurrence: None)
  Receive Date: 20050513
  Receipt Date: 20050303
  Transmission Date: 20051028
  Serious: Yes (Hospitalization)
  Sender: FDA-Public Use
  Company Number: DE-MERCK-0503DEU00043

PATIENT
  Age: 55 Year
  Sex: Male

DRUGS (4)
  1. VIOXX [Suspect]
     Indication: SPINAL COLUMN STENOSIS
     Route: 048
     Dates: start: 20020418, end: 20020401
  2. VIOXX [Suspect]
     Route: 048
     Dates: start: 20020401
  3. VIOXX [Suspect]
     Indication: BACK PAIN
     Route: 048
     Dates: start: 20020418, end: 20020401
  4. VIOXX [Suspect]
     Route: 048
     Dates: start: 20020401

REACTIONS (19)
  - ANGINA UNSTABLE [None]
  - BACK PAIN [None]
  - CEREBRAL INFARCTION [None]
  - CORONARY ARTERY DISEASE [None]
  - DEPRESSION [None]
  - DIVERTICULUM [None]
  - EPISTAXIS [None]
  - GAIT DISTURBANCE [None]
  - GASTROOESOPHAGEAL REFLUX DISEASE [None]
  - HEPATIC STEATOSIS [None]
  - HYPERTENSION [None]
  - HYPERTENSIVE HEART DISEASE [None]
  - MYALGIA [None]
  - NASAL SEPTUM DISORDER [None]
  - NERVE ROOT COMPRESSION [None]
  - PERIPHERAL OCCLUSIVE DISEASE [None]
  - POLYNEUROPATHY [None]
  - RENAL FAILURE [None]
  - VENTRICULAR EXTRASYSTOLES [None]
